FAERS Safety Report 4392767-6 (Version None)
Quarter: 2004Q3

REPORT INFORMATION
  Report Type: 
  Country: None (occurrence: None)
  Receive Date: 20040706
  Receipt Date: 20040622
  Transmission Date: 20050211
  Serious: No
  Sender: FDA-Public Use
  Company Number: 2004UW12929

PATIENT
  Age: 75 Year
  Sex: Female

DRUGS (5)
  1. CRESTOR [Suspect]
     Indication: BLOOD CHOLESTEROL INCREASED
     Dosage: 10 MG QD PO
     Route: 048
     Dates: start: 20040611
  2. LODINE [Concomitant]
  3. ASPIRIN [Concomitant]
  4. GLUCOSAMINE [Concomitant]
  5. ZIAC [Concomitant]

REACTIONS (6)
  - BILE DUCT OBSTRUCTION [None]
  - BLOOD BILIRUBIN INCREASED [None]
  - HEPATIC ENZYME INCREASED [None]
  - HEPATIC NEOPLASM [None]
  - JAUNDICE [None]
  - PANCREATIC CARCINOMA [None]
